FAERS Safety Report 13571491 (Version 1)
Quarter: 2017Q2

REPORT INFORMATION
  Report Type: Spontaneous
  Country: US (occurrence: US)
  Receive Date: 20170522
  Receipt Date: 20170522
  Transmission Date: 20170830
  Serious: Yes (Hospitalization)
  Sender: FDA-Public Use
  Company Number: None

PATIENT
  Age: 71 Year
  Sex: Male
  Weight: 94.8 kg

DRUGS (2)
  1. RITUXIMAB 500MG/M2 IV [Suspect]
     Active Substance: RITUXIMAB
     Indication: CHRONIC LYMPHOCYTIC LEUKAEMIA
     Dosage: FREQUENCY - DAY 1 EVERY 3MTH
     Route: 042
     Dates: start: 20140827
  2. VORINOSTAT 400MG PO [Suspect]
     Active Substance: VORINOSTAT
     Indication: CHRONIC LYMPHOCYTIC LEUKAEMIA
     Dosage: FREQUENCY - ONCE DAILY X 14 DAYS
     Route: 048
     Dates: start: 20140827, end: 20140909

REACTIONS (4)
  - Pneumonia [None]
  - Malaise [None]
  - Clostridium test positive [None]
  - Febrile neutropenia [None]

NARRATIVE: CASE EVENT DATE: 20140919
